FAERS Safety Report 4714295-8 (Version None)
Quarter: 2005Q3

REPORT INFORMATION
  Report Type: 
  Country: None (occurrence: None)
  Receive Date: 20050712
  Receipt Date: 20050630
  Transmission Date: 20060218
  Serious: Yes (Death, Life-Threatening, Hospitalization)
  Sender: FDA-Public Use
  Company Number: HQWYE490717NOV04

PATIENT
  Age: 82 Year
  Sex: Female

DRUGS (12)
  1. RHEUMATREX [Suspect]
     Indication: RHEUMATOID ARTHRITIS
     Dosage: SEE IMAGE
     Route: 048
     Dates: start: 20041102, end: 20041116
  2. RHEUMATREX [Suspect]
     Indication: RHEUMATOID ARTHRITIS
     Dosage: SEE IMAGE
     Route: 048
     Dates: start: 20000101
  3. MINOCYCLINE HCL [Suspect]
     Indication: RHEUMATOID ARTHRITIS
     Dosage: 200 MG 1X PER 1 DAY ORAL
     Route: 048
     Dates: start: 20040218
  4. VOLTAREN [Concomitant]
  5. VOLTAREN [Concomitant]
  6. PREDNISONE [Concomitant]
  7. STARLIX [Concomitant]
  8. COTRIM [Concomitant]
  9. FAMOTIDINE [Concomitant]
  10. SIGMART (NICORANDIL) [Concomitant]
  11. PERSANTINE [Concomitant]
  12. RESPIRATORY PRODUCT (RESPIRATORY PRODUCT) [Concomitant]

REACTIONS (7)
  - BONE MARROW DEPRESSION [None]
  - FUNGAL INFECTION [None]
  - PLEURAL EFFUSION [None]
  - PNEUMONIA [None]
  - SEPTIC SHOCK [None]
  - STAPHYLOCOCCAL INFECTION [None]
  - STOMATITIS [None]
